FAERS Safety Report 7591315 (Version 3)
Quarter: 2013Q4

REPORT INFORMATION
  Report Type: Spontaneous
  Country: US (occurrence: US)
  Receive Date: 20100917
  Receipt Date: 20131015
  Transmission Date: 20140711
  Serious: No
  Sender: FDA-Public Use
  Company Number: US-ASTRAZENECA-2010SE27840

PATIENT
  Age: 60 Year
  Sex: Female
  Weight: 63.5 kg

DRUGS (51)
  1. SEROQUEL [Suspect]
     Indication: SLEEP DISORDER
     Route: 048
     Dates: start: 2004
  2. SEROQUEL [Suspect]
     Indication: BIPOLAR DISORDER
     Route: 048
     Dates: start: 2004
  3. SEROQUEL [Suspect]
     Indication: BIPOLAR I DISORDER
     Route: 048
     Dates: start: 2004
  4. SEROQUEL [Suspect]
     Indication: MENOPAUSAL DEPRESSION
     Route: 048
     Dates: start: 2004
  5. SEROQUEL [Suspect]
     Indication: AGITATION
     Route: 048
     Dates: start: 2004
  6. SEROQUEL [Suspect]
     Indication: SLEEP DISORDER
     Route: 048
     Dates: start: 2005
  7. SEROQUEL [Suspect]
     Indication: BIPOLAR DISORDER
     Route: 048
     Dates: start: 2005
  8. SEROQUEL [Suspect]
     Indication: BIPOLAR I DISORDER
     Route: 048
     Dates: start: 2005
  9. SEROQUEL [Suspect]
     Indication: MENOPAUSAL DEPRESSION
     Route: 048
     Dates: start: 2005
  10. SEROQUEL [Suspect]
     Indication: AGITATION
     Route: 048
     Dates: start: 2005
  11. SEROQUEL [Suspect]
     Indication: SLEEP DISORDER
     Dosage: 400 MG AT NIGHT, GENERIC
     Route: 048
     Dates: start: 2008
  12. SEROQUEL [Suspect]
     Indication: BIPOLAR DISORDER
     Dosage: 400 MG AT NIGHT, GENERIC
     Route: 048
     Dates: start: 2008
  13. SEROQUEL [Suspect]
     Indication: BIPOLAR I DISORDER
     Dosage: 400 MG AT NIGHT, GENERIC
     Route: 048
     Dates: start: 2008
  14. SEROQUEL [Suspect]
     Indication: MENOPAUSAL DEPRESSION
     Dosage: 400 MG AT NIGHT, GENERIC
     Route: 048
     Dates: start: 2008
  15. SEROQUEL [Suspect]
     Indication: AGITATION
     Dosage: 400 MG AT NIGHT, GENERIC
     Route: 048
     Dates: start: 2008
  16. SEROQUEL [Suspect]
     Indication: SLEEP DISORDER
     Route: 048
     Dates: start: 2008
  17. SEROQUEL [Suspect]
     Indication: BIPOLAR DISORDER
     Route: 048
     Dates: start: 2008
  18. SEROQUEL [Suspect]
     Indication: BIPOLAR I DISORDER
     Route: 048
     Dates: start: 2008
  19. SEROQUEL [Suspect]
     Indication: MENOPAUSAL DEPRESSION
     Route: 048
     Dates: start: 2008
  20. SEROQUEL [Suspect]
     Indication: AGITATION
     Route: 048
     Dates: start: 2008
  21. SEROQUEL [Suspect]
     Indication: SLEEP DISORDER
     Route: 048
     Dates: start: 200902
  22. SEROQUEL [Suspect]
     Indication: BIPOLAR DISORDER
     Route: 048
     Dates: start: 200902
  23. SEROQUEL [Suspect]
     Indication: BIPOLAR I DISORDER
     Route: 048
     Dates: start: 200902
  24. SEROQUEL [Suspect]
     Indication: MENOPAUSAL DEPRESSION
     Route: 048
     Dates: start: 200902
  25. SEROQUEL [Suspect]
     Indication: AGITATION
     Route: 048
     Dates: start: 200902
  26. SEROQUEL [Suspect]
     Indication: SLEEP DISORDER
     Route: 048
  27. SEROQUEL [Suspect]
     Indication: BIPOLAR DISORDER
     Route: 048
  28. SEROQUEL [Suspect]
     Indication: BIPOLAR I DISORDER
     Route: 048
  29. SEROQUEL [Suspect]
     Indication: MENOPAUSAL DEPRESSION
     Route: 048
  30. SEROQUEL [Suspect]
     Indication: AGITATION
     Route: 048
  31. SEROQUEL [Suspect]
     Indication: SLEEP DISORDER
     Route: 048
  32. SEROQUEL [Suspect]
     Indication: BIPOLAR DISORDER
     Route: 048
  33. SEROQUEL [Suspect]
     Indication: BIPOLAR I DISORDER
     Route: 048
  34. SEROQUEL [Suspect]
     Indication: MENOPAUSAL DEPRESSION
     Route: 048
  35. SEROQUEL [Suspect]
     Indication: AGITATION
     Route: 048
  36. SEROQUEL [Suspect]
     Indication: SLEEP DISORDER
     Route: 048
  37. SEROQUEL [Suspect]
     Indication: BIPOLAR DISORDER
     Route: 048
  38. SEROQUEL [Suspect]
     Indication: BIPOLAR I DISORDER
     Route: 048
  39. SEROQUEL [Suspect]
     Indication: MENOPAUSAL DEPRESSION
     Route: 048
  40. SEROQUEL [Suspect]
     Indication: AGITATION
     Route: 048
  41. SEROQUEL [Suspect]
     Indication: SLEEP DISORDER
     Route: 048
  42. SEROQUEL [Suspect]
     Indication: BIPOLAR DISORDER
     Route: 048
  43. SEROQUEL [Suspect]
     Indication: BIPOLAR I DISORDER
     Route: 048
  44. SEROQUEL [Suspect]
     Indication: MENOPAUSAL DEPRESSION
     Route: 048
  45. SEROQUEL [Suspect]
     Indication: AGITATION
     Route: 048
  46. TRILEPTAL [Suspect]
     Route: 065
  47. TRILEPTAL [Suspect]
     Route: 065
  48. EFFEXOR XR [Concomitant]
  49. LORAZEPAM [Concomitant]
  50. DEPAKOTE [Concomitant]
     Indication: BIPOLAR I DISORDER
     Dates: start: 2012
  51. ZOLPIDEM TARTRATE [Concomitant]
     Indication: SLEEP DISORDER

REACTIONS (16)
  - Mood swings [Unknown]
  - Limb discomfort [Unknown]
  - Insomnia [Unknown]
  - Malaise [Unknown]
  - Depression [Unknown]
  - Menopausal depression [Unknown]
  - Paraesthesia [Unknown]
  - Mental disorder [Unknown]
  - Malaise [Unknown]
  - Weight increased [Unknown]
  - Dyskinesia [Unknown]
  - Increased appetite [Unknown]
  - Sedation [Unknown]
  - Off label use [Unknown]
  - Drug dose omission [Unknown]
  - Drug ineffective [Unknown]
